APPROVED DRUG PRODUCT: ZIDOVUDINE
Active Ingredient: ZIDOVUDINE
Strength: 10MG/ML
Dosage Form/Route: INJECTABLE;INJECTION
Application: A204538 | Product #001
Applicant: LIAONING CHENGDA BIOTECHNOLOGY CO LTD
Approved: Nov 26, 2013 | RLD: No | RS: No | Type: DISCN